FAERS Safety Report 13707845 (Version 1)
Quarter: 2017Q2

REPORT INFORMATION
  Report Type: Spontaneous
  Country: US (occurrence: US)
  Receive Date: 20170630
  Receipt Date: 20170630
  Transmission Date: 20170830
  Serious: Yes (Other)
  Sender: FDA-Public Use
  Company Number: US-FRESENIUS KABI-FK201705460

PATIENT
  Age: 39 Year
  Sex: Male

DRUGS (2)
  1. BUPIVACAINE W/EPINEPHRINE (MANUFACTURER UNKNOWN) [Suspect]
     Active Substance: BUPIVACAINE HYDROCHLORIDE\EPINEPHRINE
     Indication: PAIN
     Route: 065
  2. METHYLPREDNISOLONE (MANUFACTURER UNKNOWN) [Suspect]
     Active Substance: METHYLPREDNISOLONE
     Indication: PAIN
     Route: 065

REACTIONS (2)
  - Paralysis [Recovered/Resolved]
  - Hypokalaemia [Recovered/Resolved]
